FAERS Safety Report 16353646 (Version 1)
Quarter: 2019Q2

REPORT INFORMATION
  Report Type: Spontaneous
  Country: HR (occurrence: HR)
  Receive Date: 20190524
  Receipt Date: 20190524
  Transmission Date: 20190711
  Serious: Yes (Other)
  Sender: FDA-Public Use
  Company Number: HR-PFIZER INC-2019215751

PATIENT
  Age: 17 Year
  Sex: Female
  Weight: 44 kg

DRUGS (2)
  1. NORMABEL [Suspect]
     Active Substance: DIAZEPAM
     Dosage: 50 MG (6-10 TABLETS)
     Route: 048
     Dates: start: 20181223, end: 20181223
  2. ALPRAZOLAM. [Suspect]
     Active Substance: ALPRAZOLAM
     Dosage: 10 MG, 6-10 TABLETS
     Route: 048
     Dates: start: 20181223, end: 20181223

REACTIONS (3)
  - Somnolence [Unknown]
  - Suicide attempt [Unknown]
  - Intentional overdose [Unknown]

NARRATIVE: CASE EVENT DATE: 20181223
